FAERS Safety Report 21381094 (Version 1)
Quarter: 2022Q3

REPORT INFORMATION
  Report Type: Report from Study
  Country: US (occurrence: US)
  Receive Date: 20220927
  Receipt Date: 20220927
  Transmission Date: 20221027
  Serious: Yes (Hospitalization)
  Sender: FDA-Public Use
  Company Number: US-BAYER-2022A130980

PATIENT
  Age: 83 Year
  Sex: Male
  Weight: 73.923 kg

DRUGS (3)
  1. ADEMPAS [Suspect]
     Active Substance: RIOCIGUAT
     Indication: Pulmonary arterial hypertension
     Dosage: UNK
     Dates: start: 20220204
  2. ADEMPAS [Suspect]
     Active Substance: RIOCIGUAT
     Indication: Pulmonary arterial hypertension
     Dosage: 2.0 MG, TID
     Route: 048
     Dates: end: 20220915
  3. XARELTO [Suspect]
     Active Substance: RIVAROXABAN

REACTIONS (7)
  - Traumatic intracranial haemorrhage [None]
  - Fall [None]
  - Syncope [None]
  - Contusion [None]
  - Headache [None]
  - Hypotension [Not Recovered/Not Resolved]
  - Product dose omission issue [None]

NARRATIVE: CASE EVENT DATE: 20220101
